FAERS Safety Report 6534324-9 (Version None)
Quarter: 2010Q1

REPORT INFORMATION
  Report Type: 
  Country: None (occurrence: None)
  Receive Date: 20100112
  Receipt Date: 20100106
  Transmission Date: 20100710
  Serious: Yes (Other)
  Sender: FDA-Public Use
  Company Number: US-SANOFI-AVENTIS-2010SA000587

PATIENT
  Sex: Male

DRUGS (3)
  1. MULTAQ [Suspect]
     Indication: ATRIAL FIBRILLATION
     Route: 048
     Dates: start: 20091219, end: 20091229
  2. CARDIZEM [Concomitant]
     Indication: HEART RATE
  3. COUMADIN [Concomitant]
     Indication: ATRIAL FIBRILLATION

REACTIONS (6)
  - AGITATION [None]
  - DRUG INTOLERANCE [None]
  - DYSPHAGIA [None]
  - NERVOUSNESS [None]
  - OROPHARYNGEAL PAIN [None]
  - SWOLLEN TONGUE [None]
